FAERS Safety Report 5324859-9 (Version None)
Quarter: 2007Q2

REPORT INFORMATION
  Report Type: 
  Country: None (occurrence: None)
  Receive Date: 20070515
  Receipt Date: 20070508
  Transmission Date: 20071010
  Serious: Yes (Other)
  Sender: FDA-Public Use
  Company Number: US-ELI_LILLY_AND_COMPANY-US200705002247

PATIENT
  Age: 60 Year
  Sex: Female

DRUGS (3)
  1. XIGRIS [Suspect]
     Indication: SEPTIC SHOCK
     Route: 042
     Dates: start: 20070507, end: 20070508
  2. XIGRIS [Suspect]
     Dates: start: 20070508
  3. LEVOPHED [Concomitant]
     Dosage: 1 D/F, UNK
     Route: 042
     Dates: start: 20070101, end: 20070508

REACTIONS (3)
  - CHEST PAIN [None]
  - ELECTROCARDIOGRAM ST SEGMENT ELEVATION [None]
  - TROPONIN INCREASED [None]
